FAERS Safety Report 21401984 (Version 1)
Quarter: 2022Q4

REPORT INFORMATION
  Report Type: Spontaneous
  Country: US (occurrence: US)
  Receive Date: 20221003
  Receipt Date: 20221003
  Transmission Date: 20230112
  Serious: No
  Sender: FDA-Public Use
  Company Number: US-BRISTOL-MYERS SQUIBB COMPANY-2022-114509

PATIENT
  Age: 79 Year
  Sex: Female

DRUGS (1)
  1. POMALYST [Suspect]
     Active Substance: POMALIDOMIDE
     Indication: Plasma cell myeloma
     Dosage: FREQ:  DAILY FOR 21 DAYS, 7 DAYS OFF
     Route: 048
     Dates: start: 20210913

REACTIONS (3)
  - Pain [Unknown]
  - Insomnia [Unknown]
  - Quality of life decreased [Unknown]
